FAERS Safety Report 12779269 (Version 1)
Quarter: 2016Q3

REPORT INFORMATION
  Report Type: Spontaneous
  Country: US (occurrence: US)
  Receive Date: 20160926
  Receipt Date: 20160926
  Transmission Date: 20161109
  Serious: No
  Sender: FDA-Public Use
  Company Number: US-JAZZ-2016-US-011365

PATIENT
  Sex: Female

DRUGS (41)
  1. XYREM [Suspect]
     Active Substance: SODIUM OXYBATE
     Dosage: 4.5 G, BID
     Route: 048
     Dates: start: 200401
  2. SPIRIVA [Concomitant]
     Active Substance: TIOTROPIUM BROMIDE MONOHYDRATE
  3. CATAPRES-TTS [Concomitant]
     Active Substance: CLONIDINE
  4. COLACE [Concomitant]
     Active Substance: DOCUSATE SODIUM
  5. SPIRONOLACTONE. [Concomitant]
     Active Substance: SPIRONOLACTONE
  6. ZOLPIDEM TARTRATE. [Concomitant]
     Active Substance: ZOLPIDEM TARTRATE
  7. ORTHO-CYCLEN-28 [Concomitant]
  8. TRAZODONE [Concomitant]
     Active Substance: TRAZODONE HYDROCHLORIDE
  9. FLONASE [Concomitant]
     Active Substance: FLUTICASONE PROPIONATE
  10. IMITREX [Concomitant]
     Active Substance: SUMATRIPTAN SUCCINATE
  11. TRICOR [Concomitant]
     Active Substance: FENOFIBRATE
  12. AMOXICILLIN. [Concomitant]
     Active Substance: AMOXICILLIN
  13. ASPIRIN. [Concomitant]
     Active Substance: ASPIRIN
  14. VESICARE [Concomitant]
     Active Substance: SOLIFENACIN SUCCINATE
  15. SYMBICORT [Concomitant]
     Active Substance: BUDESONIDE\FORMOTEROL FUMARATE DIHYDRATE
  16. METHADONE HCL [Concomitant]
     Active Substance: METHADONE HYDROCHLORIDE
  17. ALLOPURINOL. [Concomitant]
     Active Substance: ALLOPURINOL
  18. AUGMENTIN [Concomitant]
     Active Substance: AMOXICILLIN\CLAVULANATE POTASSIUM
  19. FLECTOR [Concomitant]
     Active Substance: DICLOFENAC EPOLAMINE
  20. LYRICA [Concomitant]
     Active Substance: PREGABALIN
  21. NUVIGIL [Concomitant]
     Active Substance: ARMODAFINIL
  22. REGLAN [Concomitant]
     Active Substance: METOCLOPRAMIDE HYDROCHLORIDE
  23. DEMADEX [Concomitant]
     Active Substance: TORSEMIDE
  24. DOXYCYCLINE HYCLATE. [Concomitant]
     Active Substance: DOXYCYCLINE HYCLATE
  25. PREVACID [Concomitant]
     Active Substance: LANSOPRAZOLE
  26. XYREM [Suspect]
     Active Substance: SODIUM OXYBATE
     Indication: CATAPLEXY
     Dosage: 3 G, BID
     Route: 048
     Dates: start: 200311, end: 200401
  27. METOPROLOL SUCCINATE. [Concomitant]
     Active Substance: METOPROLOL SUCCINATE
  28. MYRBETRIQ [Concomitant]
     Active Substance: MIRABEGRON
  29. OMEPRAZOLE. [Concomitant]
     Active Substance: OMEPRAZOLE
  30. CALCIUM +D [Concomitant]
     Active Substance: CALCIUM\VITAMIN D
  31. KLOR-CON [Concomitant]
     Active Substance: POTASSIUM CHLORIDE
  32. ZOFRAN [Concomitant]
     Active Substance: ONDANSETRON HYDROCHLORIDE
  33. XYREM [Suspect]
     Active Substance: SODIUM OXYBATE
     Indication: NARCOLEPSY
     Dosage: 2.25 G, BID
     Route: 048
     Dates: start: 200311, end: 200311
  34. NORCO [Concomitant]
     Active Substance: ACETAMINOPHEN\HYDROCODONE BITARTRATE
  35. MORPHINE SULF [Concomitant]
     Active Substance: MORPHINE SULFATE
  36. PRENATAL [Concomitant]
     Active Substance: VITAMINS
  37. AMLODIPINE BESYLATE. [Concomitant]
     Active Substance: AMLODIPINE BESYLATE
  38. LEVAQUIN [Concomitant]
     Active Substance: LEVOFLOXACIN
  39. PROMETHAZINE [Concomitant]
     Active Substance: PROMETHAZINE\PROMETHAZINE HYDROCHLORIDE
  40. REQUIP [Concomitant]
     Active Substance: ROPINIROLE HYDROCHLORIDE
  41. ZANAFLEX [Concomitant]
     Active Substance: TIZANIDINE HYDROCHLORIDE

REACTIONS (1)
  - Asthma [Unknown]
